FAERS Safety Report 4569465-9 (Version None)
Quarter: 2005Q1

REPORT INFORMATION
  Report Type: 
  Country: None (occurrence: None)
  Receive Date: 20050201
  Receipt Date: 20050122
  Transmission Date: 20050727
  Serious: Yes (Other)
  Sender: FDA-Public Use
  Company Number: 2004101361

PATIENT
  Age: 77 Year
  Sex: Female

DRUGS (3)
  1. PHENYTOIN [Suspect]
     Indication: EPILEPSY
  2. LATANOPROST [Concomitant]
  3. TIMOLOL MALEATE [Concomitant]

REACTIONS (4)
  - CATARACT [None]
  - GLAUCOMA [None]
  - OPEN ANGLE GLAUCOMA [None]
  - VISUAL ACUITY REDUCED [None]
